FAERS Safety Report 7350156-6 (Version None)
Quarter: 2011Q1

REPORT INFORMATION
  Report Type: 
  Country: None (occurrence: None)
  Receive Date: 20110314
  Receipt Date: 20110304
  Transmission Date: 20110831
  Serious: Yes (Death)
  Sender: FDA-Public Use
  Company Number: B0699534A

PATIENT
  Sex: Male

DRUGS (1)
  1. RELENZA [Suspect]
     Indication: INFLUENZA
     Route: 055

REACTIONS (5)
  - LOSS OF CONSCIOUSNESS [None]
  - APNOEA [None]
  - CARDIAC FAILURE CONGESTIVE [None]
  - COUGH [None]
  - CARDIAC ARREST [None]
